FAERS Safety Report 18329453 (Version 1)
Quarter: 2020Q3

REPORT INFORMATION
  Report Type: Spontaneous
  Country: US (occurrence: US)
  Receive Date: 20200930
  Receipt Date: 20200930
  Transmission Date: 20201103
  Serious: No
  Sender: FDA-Public Use
  Company Number: US-ASTRAZENECA-2020SF11496

PATIENT
  Age: 771 Month
  Sex: Female

DRUGS (1)
  1. CALQUENCE [Suspect]
     Active Substance: ACALABRUTINIB
     Indication: CHRONIC LYMPHOCYTIC LEUKAEMIA (IN REMISSION)
     Dosage: UNKNOWN
     Route: 048
     Dates: start: 202006

REACTIONS (3)
  - Malaise [Recovering/Resolving]
  - Hepatic enzyme abnormal [Recovering/Resolving]
  - Vomiting [Recovering/Resolving]

NARRATIVE: CASE EVENT DATE: 202006
